FAERS Safety Report 7770561-3 (Version None)
Quarter: 2011Q3

REPORT INFORMATION
  Report Type: 
  Country: None (occurrence: None)
  Receive Date: 20110922
  Receipt Date: 20110909
  Transmission Date: 20111222
  Serious: Yes (Other)
  Sender: FDA-Public Use
  Company Number: PHFR2011GB01659

PATIENT
  Sex: Male

DRUGS (13)
  1. SIMVASTATIN [Concomitant]
     Dosage: UNK
  2. RAMIPRIL [Concomitant]
     Indication: DIABETES MELLITUS
     Dosage: 10 MG, DAILY
     Route: 048
     Dates: start: 20041001
  3. IRBESARTAN [Concomitant]
     Dosage: 150 MG, DAILY
     Route: 048
  4. SILDENAFIL CITRATE [Concomitant]
     Indication: ERECTILE DYSFUNCTION
     Dosage: UNK
     Route: 065
  5. LESCOL [Suspect]
     Dosage: 20 MG, UNK
  6. LESCOL [Suspect]
     Dosage: 20 MG, UNK
  7. APIDRA [Concomitant]
     Indication: DIABETES MELLITUS
     Dosage: UNK
     Route: 058
     Dates: start: 20100601
  8. Q10 [Concomitant]
     Dosage: UNK
     Route: 065
  9. LESCOL [Suspect]
     Dosage: 40 MG, UNK
  10. TERBUTALINE [Concomitant]
     Indication: ASTHMA
     Dosage: UNK
     Route: 065
  11. METFORMIN [Concomitant]
     Indication: DIABETES MELLITUS
     Dosage: UNK
     Route: 048
  12. SYMBICORT [Concomitant]
     Indication: ASTHMA
     Dosage: UNK
     Route: 065
  13. TADALAFIL [Concomitant]
     Indication: ERECTILE DYSFUNCTION
     Dosage: UNK
     Route: 065

REACTIONS (5)
  - MYALGIA [None]
  - BACK PAIN [None]
  - PAIN IN EXTREMITY [None]
  - ARTHRALGIA [None]
  - EXOSTOSIS [None]
